FAERS Safety Report 14163197 (Version 2)
Quarter: 2017Q4

REPORT INFORMATION
  Report Type: Spontaneous
  Country: JP (occurrence: JP)
  Receive Date: 20171106
  Receipt Date: 20171226
  Transmission Date: 20180321
  Serious: Yes (Death, Hospitalization)
  Sender: FDA-Public Use
  Company Number: JP-DSJP-DSJ-2017-141093

PATIENT

DRUGS (10)
  1. DOPACOL [Concomitant]
     Active Substance: CARBIDOPA\LEVODOPA
     Indication: PARKINSON^S DISEASE
     Dosage: 100 UNK, BID
     Route: 065
     Dates: end: 20170928
  2. CELECOX [Concomitant]
     Active Substance: CELECOXIB
     Indication: SPINAL COMPRESSION FRACTURE
     Dosage: 100 MG, BID
     Route: 065
     Dates: end: 20170929
  3. DENOTAS CHEWABLE COMBINATION TABLETS [Concomitant]
     Indication: HYPOCALCAEMIA
     Dosage: 8.21 MG, QD
     Route: 065
     Dates: end: 20170920
  4. LUNESTA [Concomitant]
     Active Substance: ESZOPICLONE
     Indication: INSOMNIA
     Dosage: 1 MG, QD
     Route: 048
     Dates: end: 20170929
  5. TEPRENONE [Concomitant]
     Active Substance: TEPRENONE
     Indication: GASTROINTESTINAL MUCOSAL DISORDER
     Dosage: 50 MG, BID
     Route: 065
     Dates: end: 20170929
  6. LIXIANA TABLETS 30MG [Suspect]
     Active Substance: EDOXABAN TOSYLATE
     Indication: DEEP VEIN THROMBOSIS
     Dosage: 30 MG, QD
     Route: 065
     Dates: end: 20170928
  7. TERBINAFINE                        /00992602/ [Concomitant]
     Dosage: 125 MG, QD
     Route: 065
     Dates: end: 20170929
  8. PRALIA SUBCUTANEOUS INJECTION 60MG SYRINGE [Suspect]
     Active Substance: DENOSUMAB
     Indication: OSTEOPOROSIS
     Dosage: 1 ML, UNK
     Route: 058
     Dates: start: 20170829, end: 20170829
  9. MAGNESIUM OXIDE. [Concomitant]
     Active Substance: MAGNESIUM OXIDE
     Indication: CONSTIPATION
     Dosage: 330 MG, TID
     Route: 065
     Dates: end: 20170929
  10. ARICEPT [Concomitant]
     Active Substance: DONEPEZIL HYDROCHLORIDE
     Indication: DEMENTIA ALZHEIMER^S TYPE
     Dosage: 3 MG, QD
     Route: 065
     Dates: end: 20170929

REACTIONS (5)
  - Hypocalcaemia [Not Recovered/Not Resolved]
  - Haematochezia [Not Recovered/Not Resolved]
  - Hepatic function abnormal [Not Recovered/Not Resolved]
  - Disseminated intravascular coagulation [Fatal]
  - Haematuria [Not Recovered/Not Resolved]

NARRATIVE: CASE EVENT DATE: 20170912
